FAERS Safety Report 7133640-X (Version None)
Quarter: 2010Q4

REPORT INFORMATION
  Report Type: 
  Country: None (occurrence: None)
  Receive Date: 20101202
  Receipt Date: 20101122
  Transmission Date: 20110411
  Serious: Yes (Hospitalization)
  Sender: FDA-Public Use
  Company Number: NO-ABBOTT-10P-122-0687099-00

PATIENT
  Sex: Female

DRUGS (2)
  1. HUMIRA [Suspect]
     Indication: GASTROINTESTINAL INFLAMMATION
     Route: 058
     Dates: start: 20080901
  2. HUMIRA [Suspect]
     Indication: POLYARTHRITIS

REACTIONS (1)
  - GASTROINTESTINAL STOMA COMPLICATION [None]
